FAERS Safety Report 11203997 (Version 1)
Quarter: 2015Q2

REPORT INFORMATION
  Report Type: Spontaneous
  Country: US (occurrence: US)
  Receive Date: 20150619
  Receipt Date: 20150619
  Transmission Date: 20150821
  Serious: Yes (Other)
  Sender: FDA-Public Use
  Company Number: PHHY2015US059910

PATIENT
  Age: 54 Year
  Sex: Female

DRUGS (6)
  1. LEVOTHYROXINE [Concomitant]
     Active Substance: LEVOTHYROXINE
     Indication: THYROIDECTOMY
     Dosage: 150 MG, QD
     Route: 048
     Dates: start: 2009
  2. FLEXERIL [Concomitant]
     Active Substance: CYCLOBENZAPRINE HYDROCHLORIDE
     Indication: MUSCLE SPASMS
     Dosage: 10 MG, TID
     Route: 048
     Dates: start: 201410
  3. PHENERGAN//PROMETHAZINE [Concomitant]
     Indication: PRODUCT USED FOR UNKNOWN INDICATION
     Dosage: 25 MG, PRN
     Route: 048
     Dates: start: 2014
  4. CAMBIA [Suspect]
     Active Substance: DICLOFENAC POTASSIUM
     Indication: MIGRAINE
     Dosage: 50 MG, QD
     Route: 048
     Dates: start: 20150428, end: 20150428
  5. CAMBIA [Suspect]
     Active Substance: DICLOFENAC POTASSIUM
     Dosage: 50 MG, PRN
     Route: 048
     Dates: start: 20150430
  6. HYDROCODONE [Concomitant]
     Active Substance: HYDROCODONE
     Indication: BACK PAIN
     Dosage: UNK
     Route: 048
     Dates: start: 2014

REACTIONS (5)
  - Vomiting [Recovered/Resolved]
  - Product quality issue [Unknown]
  - Hypertension [Recovering/Resolving]
  - Nausea [Recovered/Resolved]
  - Drug ineffective [Unknown]

NARRATIVE: CASE EVENT DATE: 20150428
